FAERS Safety Report 16788158 (Version 4)
Quarter: 2020Q2

REPORT INFORMATION
  Report Type: Spontaneous
  Country: PT (occurrence: PT)
  Receive Date: 20190909
  Receipt Date: 20200525
  Transmission Date: 20200713
  Serious: Yes (Hospitalization, Other)
  Sender: FDA-Public Use
  Company Number: PT-AUROBINDO-AUR-APL-2019-058897

PATIENT
  Age: 48 Year
  Sex: Female

DRUGS (25)
  1. ETHINYLESTRADIOL+GESTODENE 0.03MG/0.075MG [Interacting]
     Active Substance: ETHINYL ESTRADIOL\GESTODENE
     Indication: WEIGHT CONTROL
  2. FUROSEMIDE. [Suspect]
     Active Substance: FUROSEMIDE
     Indication: WEIGHT DECREASED
     Dosage: 40 MILLIGRAM  (COMPOUNDED PREPARATION)
     Route: 065
  3. FRANGULA PURSHIANA [Suspect]
     Active Substance: HERBALS
     Indication: WEIGHT DECREASED
     Dosage: UNK, COMPOUNDED PREPARATION
     Route: 065
  4. CASSIA ALEXANDRINA [Suspect]
     Active Substance: SENNA LEAF
     Indication: WEIGHT DECREASED
     Dosage: 20 MILLIGRAM  (COMPOUNDED PREPARATION)
     Route: 065
  5. PHENOLPHTHALEIN [Suspect]
     Active Substance: PHENOLPHTHALEIN
     Indication: WEIGHT CONTROL
  6. ETHINYLESTRADIOL+GESTODENE 0.03MG/0.075MG [Interacting]
     Active Substance: ETHINYL ESTRADIOL\GESTODENE
     Indication: ORAL CONTRACEPTION
     Dosage: UNK 0.030MG/0.075MG,RE-INTRODUCED 5 MONTHS BEFORE
     Route: 048
  7. FUROSEMIDE. [Suspect]
     Active Substance: FUROSEMIDE
     Indication: WEIGHT CONTROL
  8. ORLISTAT. [Suspect]
     Active Substance: ORLISTAT
     Indication: WEIGHT DECREASED
     Dosage: 50 MILLIGRAM  (COMPOUNDED PREPARATION)
     Route: 065
  9. PHENOLPHTHALEIN [Suspect]
     Active Substance: PHENOLPHTHALEIN
     Indication: WEIGHT DECREASED
     Dosage: 80 MILLIGRAM  (COMPOUNDED PREPARATION)
     Route: 065
  10. BUPROPION. [Suspect]
     Active Substance: BUPROPION
     Indication: WEIGHT CONTROL
  11. METFORMIN [Suspect]
     Active Substance: METFORMIN HYDROCHLORIDE
     Indication: WEIGHT DECREASED
  12. TOPIRAMATE. [Suspect]
     Active Substance: TOPIRAMATE
     Indication: WEIGHT DECREASED
     Dosage: 10 MILLIGRAM  (COMPOUNDED PREPARATION)
     Route: 065
  13. TOPIRAMATE. [Suspect]
     Active Substance: TOPIRAMATE
     Indication: WEIGHT CONTROL
  14. CENTELLA ASIATICA [Suspect]
     Active Substance: CENTELLA ASIATICA WHOLE
     Indication: WEIGHT DECREASED
     Dosage: 200 MILLIGRAM  (COMPOUNDED PREPARATION)
     Route: 065
  15. CHLORDIAZEPOXIDE. [Suspect]
     Active Substance: CHLORDIAZEPOXIDE
     Indication: WEIGHT DECREASED
     Dosage: 10 MILLIGRAM  (COMPOUNDED PREPARATION)
     Route: 065
  16. CHROMIUM PICOLINATE [Suspect]
     Active Substance: CHROMIUM PICOLINATE
     Indication: WEIGHT DECREASED
     Dosage: 200 MICROGRAM, DAILY  (COMPOUNDED PREPARATION)
     Route: 065
  17. CENTELLA ASIATICA [Suspect]
     Active Substance: CENTELLA ASIATICA WHOLE
     Indication: WEIGHT CONTROL
  18. CHLORDIAZEPOXIDE. [Suspect]
     Active Substance: CHLORDIAZEPOXIDE
     Indication: WEIGHT CONTROL
  19. CASSIA ALEXANDRINA [Suspect]
     Active Substance: SENNA LEAF
     Indication: WEIGHT CONTROL
  20. SENNOSIDE A+B [Suspect]
     Active Substance: SENNOSIDES A AND B
     Indication: WEIGHT CONTROL
     Dosage: UNK
     Route: 065
  21. BUPROPION. [Suspect]
     Active Substance: BUPROPION
     Indication: WEIGHT DECREASED
     Dosage: 100 MILLIGRAM  (COMPOUNDED PREPARATION)
     Route: 065
  22. METFORMIN [Suspect]
     Active Substance: METFORMIN HYDROCHLORIDE
     Indication: WEIGHT CONTROL
     Dosage: 200 MILLIGRAM (COMPOUNDED PREPARATION)
     Route: 065
  23. ORLISTAT. [Suspect]
     Active Substance: ORLISTAT
     Indication: WEIGHT CONTROL
  24. FRANGULA PURSHIANA [Suspect]
     Active Substance: HERBALS
     Indication: WEIGHT CONTROL
  25. CHROMIUM PICOLINATE [Suspect]
     Active Substance: CHROMIUM PICOLINATE
     Indication: WEIGHT CONTROL

REACTIONS (12)
  - Nausea [Recovered/Resolved]
  - Off label use [Unknown]
  - Intentional product misuse [Unknown]
  - Disturbance in attention [Recovered/Resolved]
  - Disorientation [Recovered/Resolved]
  - Product use in unapproved indication [Unknown]
  - Cerebral venous thrombosis [Recovered/Resolved]
  - Tension headache [Recovered/Resolved]
  - Vision blurred [Recovered/Resolved]
  - Bradyphrenia [Recovered/Resolved]
  - Speech disorder [Recovered/Resolved]
  - Drug interaction [Unknown]
